FAERS Safety Report 8958409 (Version 1)
Quarter: 2012Q4

REPORT INFORMATION
  Report Type: 
  Country: NO (occurrence: NO)
  Receive Date: 20121210
  Receipt Date: 20121210
  Transmission Date: 20130627
  Serious: Yes (Life-Threatening, Hospitalization)
  Sender: FDA-Public Use
  Company Number: NO-GLAXOSMITHKLINE-B0850805A

PATIENT
  Age: 22 Year
  Sex: Male

DRUGS (1)
  1. LAMICTAL [Suspect]
     Indication: ANXIETY
     Dosage: 25MG Per day
     Route: 048
     Dates: start: 20121029, end: 20121104

REACTIONS (8)
  - Drug reaction with eosinophilia and systemic symptoms [Recovered/Resolved]
  - Encephalitis [Recovered/Resolved]
  - Cerebellar syndrome [Recovered/Resolved]
  - Dysarthria [Recovered/Resolved]
  - Rash generalised [Recovered/Resolved]
  - Dyspnoea [Recovered/Resolved]
  - Face oedema [Recovered/Resolved]
  - Overdose [Recovered/Resolved]
